FAERS Safety Report 4410491-8 (Version None)
Quarter: 2004Q3

REPORT INFORMATION
  Report Type: 
  Country: None (occurrence: None)
  Receive Date: 20040726
  Receipt Date: 20040709
  Transmission Date: 20050211
  Serious: Yes (Hospitalization)
  Sender: FDA-Public Use
  Company Number: CN-JNJFOC-20040506139

PATIENT
  Age: 67 Year
  Sex: Female
  Weight: 60 kg

DRUGS (1)
  1. CISAPRIDE (CISAPRIDE) TABLETS [Suspect]
     Indication: ERUCTATION
     Dosage: 5 MG 2 IN 1 DAY ORAL
     Route: 048
     Dates: start: 20040522

REACTIONS (4)
  - DYSPNOEA [None]
  - NAUSEA [None]
  - PALPITATIONS [None]
  - VOMITING [None]
